FAERS Safety Report 8103767-4 (Version None)
Quarter: 2011Q4

REPORT INFORMATION
  Report Type: 
  Country: None (occurrence: None)
  Receive Date: 20111222
  Receipt Date: 20110912
  Transmission Date: 20120403
  Serious: Yes (Hospitalization)
  Sender: FDA-Public Use
  Company Number: UTC-009748

PATIENT
  Age: 42 Year
  Sex: Female
  Weight: 56.8 kg

DRUGS (4)
  1. ADCIRCA [Concomitant]
  2. COUMADIN [Concomitant]
  3. TYVASO [Suspect]
     Indication: PULMONARY ARTERIAL HYPERTENSION
     Dosage: 72 MCG (18  MCG, 4 IN 1 D), INHALATION
     Route: 055
     Dates: start: 20110816
  4. TRACLEER [Concomitant]

REACTIONS (2)
  - DRUG INEFFECTIVE [None]
  - PULMONARY ARTERIAL HYPERTENSION [None]
